FAERS Safety Report 24330509 (Version 1)
Quarter: 2024Q3

REPORT INFORMATION
  Report Type: Spontaneous
  Country: IL (occurrence: IL)
  Receive Date: 20240918
  Receipt Date: 20240918
  Transmission Date: 20241017
  Serious: Yes (Hospitalization, Other)
  Sender: Steriscience PTE
  Company Number: IL-STERISCIENCE B.V.-2024-ST-001384

PATIENT
  Age: 77 Year
  Sex: Female

DRUGS (5)
  1. METOPROLOL [Interacting]
     Active Substance: METOPROLOL
     Indication: Supraventricular tachycardia
     Dosage: 5 MILLIGRAM, WITHIN THE NEXT 30 MINUTES
     Route: 042
  2. ADENOSINE [Interacting]
     Active Substance: ADENOSINE
     Indication: Supraventricular tachycardia
     Dosage: 6 MILLIGRAM
     Route: 042
  3. VERAPAMIL [Interacting]
     Active Substance: VERAPAMIL HYDROCHLORIDE
     Indication: Supraventricular tachycardia
     Dosage: 5 MILLIGRAM
     Route: 065
  4. TAMBOCOR [Concomitant]
     Active Substance: FLECAINIDE ACETATE
     Indication: Atrial fibrillation
     Dosage: UNK
     Route: 065
  5. ELIQUIS [Concomitant]
     Active Substance: APIXABAN
     Indication: Atrial fibrillation
     Dosage: UNK
     Route: 065

REACTIONS (3)
  - Sinus node dysfunction [None]
  - Drug interaction [Unknown]
  - Off label use [Unknown]
